FAERS Safety Report 5273316-7 (Version None)
Quarter: 2007Q1

REPORT INFORMATION
  Report Type: 
  Country: None (occurrence: None)
  Receive Date: 20070319
  Receipt Date: 20070305
  Transmission Date: 20070707
  Serious: Yes (Death)
  Sender: FDA-Public Use
  Company Number: FABR-11643

PATIENT
  Age: 44 Year
  Sex: Male
  Weight: 60 kg

DRUGS (1)
  1. FABRAZYME [Suspect]
     Indication: FABRY'S DISEASE
     Dosage: 60 MG Q2WKS IV
     Route: 042
     Dates: start: 20060721, end: 20070210

REACTIONS (6)
  - ATRIOVENTRICULAR BLOCK [None]
  - ENDOCARDITIS [None]
  - PERICARDITIS [None]
  - PULMONARY ARTERIAL WEDGE PRESSURE ABNORMAL [None]
  - REFUSAL OF TREATMENT BY PATIENT [None]
  - SEPTIC SHOCK [None]
